FAERS Safety Report 8106915 (Version 2)
Quarter: 2013Q2

REPORT INFORMATION
  Report Type: Report from Study
  Country: MX (occurrence: MX)
  Receive Date: 20110825
  Receipt Date: 20130611
  Transmission Date: 20140414
  Serious: Yes (Other)
  Sender: FDA-Public Use
  Company Number: PHHY2011MX74379

PATIENT
  Age: 52 Year
  Sex: Male

DRUGS (1)
  1. EXJADE [Suspect]
     Indication: THALASSAEMIA
     Dosage: 1 DF (250 MG), DAILY
     Route: 048
     Dates: start: 201001, end: 201004

REACTIONS (3)
  - Ear discomfort [Recovered/Resolved]
  - Poisoning [Recovered/Resolved]
  - Fluid retention [Recovered/Resolved]
